FAERS Safety Report 7130073-7 (Version None)
Quarter: 2010Q4

REPORT INFORMATION
  Report Type: 
  Country: None (occurrence: None)
  Receive Date: 20101201
  Receipt Date: 20101122
  Transmission Date: 20110411
  Serious: No
  Sender: FDA-Public Use
  Company Number: US-BIOGENIDEC-2010BI041509

PATIENT
  Age: 29 Year
  Sex: Female

DRUGS (3)
  1. TYSABRI [Suspect]
     Indication: MULTIPLE SCLEROSIS
     Route: 042
     Dates: start: 20070125, end: 20080610
  2. TYSABRI [Suspect]
     Route: 042
     Dates: start: 20090220, end: 20100111
  3. TYSABRI [Suspect]
     Route: 042
     Dates: start: 20100308

REACTIONS (2)
  - DEPRESSED MOOD [None]
  - MUSCULOSKELETAL DISORDER [None]
